FAERS Safety Report 23293189 (Version 3)
Quarter: 2024Q1

REPORT INFORMATION
  Report Type: Report from Study
  Country: CN (occurrence: CN)
  Receive Date: 20231213
  Receipt Date: 20240103
  Transmission Date: 20240410
  Serious: Yes (Death, Life-Threatening)
  Sender: FDA-Public Use
  Company Number: CN-PFIZER INC-PV202300200595

PATIENT
  Age: 54 Year
  Sex: Female
  Weight: 62 kg

DRUGS (16)
  1. CYTARABINE [Suspect]
     Active Substance: CYTARABINE
     Indication: Acute myeloid leukaemia
     Dosage: 1600 MG, 1X/DAY
     Route: 041
     Dates: start: 20231128, end: 20231202
  2. INVESTIGATIONAL PRODUCT [Suspect]
     Active Substance: INVESTIGATIONAL PRODUCT
     Indication: Acute myeloid leukaemia
     Dosage: UNK UNK, 1X/DAY
     Route: 041
     Dates: start: 20231127, end: 20231127
  3. INVESTIGATIONAL PRODUCT [Suspect]
     Active Substance: INVESTIGATIONAL PRODUCT
     Dosage: UNK UNK, 1X/DAY
     Route: 041
     Dates: start: 20231128, end: 20231203
  4. MITOXANTRONE [Suspect]
     Active Substance: MITOXANTRONE HYDROCHLORIDE
     Indication: Acute myeloid leukaemia
     Dosage: 9.6 MG, 1X/DAY, 25/12.5 MILLIGRAM PER MILLILITRE
     Route: 041
     Dates: start: 20231128, end: 20231203
  5. ETOPOSIDE [Suspect]
     Active Substance: ETOPOSIDE
     Indication: Acute myeloid leukaemia
     Dosage: 160 MG, 1X/DAY,0.1/5 GRAM PER MILLILITRE
     Route: 041
     Dates: start: 20231128, end: 20231130
  6. ETHAMSYLATE [Concomitant]
     Active Substance: ETHAMSYLATE
     Dosage: SOLUTION
     Dates: start: 20231123, end: 20231203
  7. VITAMIN B6 [Concomitant]
     Active Substance: PYRIDOXINE HYDROCHLORIDE
     Dosage: SOLUTION
     Dates: start: 20231123, end: 20231202
  8. SODIUM BICARBONATE [Concomitant]
     Active Substance: SODIUM BICARBONATE
     Dosage: SOLUTION
     Dates: start: 20231123, end: 20231203
  9. OMEPRAZOLE [Concomitant]
     Active Substance: OMEPRAZOLE
     Indication: Prophylaxis
     Dosage: UNK
     Dates: start: 20231128, end: 20231203
  10. HERBALS\DIAMMONIUM GLYCYRRHIZINATE [Concomitant]
     Active Substance: HERBALS\DIAMMONIUM GLYCYRRHIZINATE
     Indication: Prophylaxis
     Dosage: UNK
     Dates: start: 20231128, end: 20231202
  11. ONDANSETRON HYDROCHLORIDE [Concomitant]
     Active Substance: ONDANSETRON HYDROCHLORIDE
     Dosage: SOLUTION
     Dates: start: 20231129, end: 20231202
  12. IBUPROFEN [Concomitant]
     Active Substance: IBUPROFEN
     Dosage: FOR SUSPENSION
     Dates: start: 20231202, end: 20231203
  13. DEXAMETHASONE SODIUM PHOSPHATE [Concomitant]
     Active Substance: DEXAMETHASONE PHOSPHATE\DEXAMETHASONE SODIUM PHOSPHATE
     Dosage: SOLUTION
     Dates: start: 20231202, end: 20231202
  14. CALCIUM GLUCONATE [Concomitant]
     Active Substance: CALCIUM GLUCONATE
     Dosage: SOLUTION
     Dates: start: 20231202, end: 20231202
  15. COMPOUND CHLORHEXIDINE GARGLE [Concomitant]
     Dosage: UNK
     Dates: start: 20231202, end: 20231203
  16. CEFOPERAZONE SODIUM\SULBACTAM SODIUM [Concomitant]
     Active Substance: CEFOPERAZONE SODIUM\SULBACTAM SODIUM
     Dosage: UNK
     Dates: start: 20231202, end: 20231202

REACTIONS (1)
  - Haemoptysis [Fatal]

NARRATIVE: CASE EVENT DATE: 20231203
